FAERS Safety Report 10070958 (Version 1)
Quarter: 2014Q2

REPORT INFORMATION
  Report Type: Spontaneous
  Country: US (occurrence: US)
  Receive Date: 20140410
  Receipt Date: 20140410
  Transmission Date: 20141212
  Serious: Yes (Hospitalization)
  Sender: FDA-Public Use
  Company Number: US-GLAXOSMITHKLINE-A1068067A

PATIENT
  Age: 72 Year
  Sex: Female

DRUGS (8)
  1. ADVAIR HFA [Suspect]
     Indication: ASTHMA
     Dosage: 1PUFF TWICE PER DAY
     Route: 055
  2. VENTOLIN [Suspect]
     Indication: ASTHMA
     Dosage: 1PUFF AS REQUIRED
     Route: 055
  3. SPIRIVA [Concomitant]
  4. AMLODIPINE [Concomitant]
  5. METOPROLOL SUCCINATE [Concomitant]
  6. RAMIPRIL [Concomitant]
  7. HCTZ [Concomitant]
  8. CITALOPRAM [Concomitant]

REACTIONS (3)
  - Small intestinal resection [Recovered/Resolved]
  - Nodule [Recovered/Resolved]
  - Surgery [Recovered/Resolved]
